FAERS Safety Report 19022478 (Version 3)
Quarter: 2021Q1

REPORT INFORMATION
  Report Type: Spontaneous
  Country: FR (occurrence: FR)
  Receive Date: 20210318
  Receipt Date: 20210331
  Transmission Date: 20210420
  Serious: Yes (Hospitalization, Other)
  Sender: FDA-Public Use
  Company Number: FR-AUROBINDO-AUR-APL-2021-010574

PATIENT
  Age: 86 Year
  Sex: Female

DRUGS (1)
  1. HYDROCHLOROTHIAZIDE. [Suspect]
     Active Substance: HYDROCHLOROTHIAZIDE
     Indication: BLOOD PRESSURE MEASUREMENT
     Dosage: 25 MILLIGRAM, ONCE A DAY
     Route: 048

REACTIONS (7)
  - Jaundice [Recovering/Resolving]
  - Drug-induced liver injury [Recovered/Resolved]
  - Asthenia [Recovering/Resolving]
  - Hepatitis [Recovering/Resolving]
  - Pruritus [Recovering/Resolving]
  - Syncope [Unknown]
  - Weight decreased [Recovering/Resolving]
